FAERS Safety Report 13939486 (Version 1)
Quarter: 2017Q3

REPORT INFORMATION
  Report Type: Spontaneous
  Country: US (occurrence: US)
  Receive Date: 20170906
  Receipt Date: 20170906
  Transmission Date: 20171127
  Serious: No
  Sender: FDA-Public Use
  Company Number: US-PFIZER INC-2017378805

PATIENT
  Sex: Female

DRUGS (1)
  1. BENZFETAMINE HCL [Suspect]
     Active Substance: BENZPHETAMINE HYDROCHLORIDE
     Dosage: 50 MG, UNK

REACTIONS (2)
  - Drug intolerance [Unknown]
  - Malaise [Unknown]
